FAERS Safety Report 11375182 (Version 3)
Quarter: 2015Q4

REPORT INFORMATION
  Report Type: Report from Study
  Country: US (occurrence: US)
  Receive Date: 20150813
  Receipt Date: 20151005
  Transmission Date: 20160304
  Serious: Yes (Hospitalization, Other)
  Sender: FDA-Public Use
  Company Number: US-BIOGENIDEC-2005BI014009

PATIENT
  Age: 52 Year
  Sex: Female

DRUGS (2)
  1. AVONEX [Suspect]
     Active Substance: INTERFERON BETA-1A
     Indication: MULTIPLE SCLEROSIS
     Route: 030
     Dates: start: 20120424, end: 20130206
  2. AVONEX [Suspect]
     Active Substance: INTERFERON BETA-1A
     Indication: MULTIPLE SCLEROSIS
     Route: 030
     Dates: start: 20030405

REACTIONS (15)
  - Snoring [Unknown]
  - Left ventricular hypertrophy [Unknown]
  - Hypertension [Unknown]
  - Hypothyroidism [Not Recovered/Not Resolved]
  - Cardiac failure congestive [Not Recovered/Not Resolved]
  - Chest pain [Recovered/Resolved]
  - Coronary artery disease [Recovered/Resolved]
  - Discomfort [Unknown]
  - Blood triglycerides increased [Unknown]
  - Ear pain [Unknown]
  - Thyroidectomy [Not Recovered/Not Resolved]
  - Mitral valve disease [Unknown]
  - Autoimmune thyroiditis [Not Recovered/Not Resolved]
  - Uterine haemorrhage [Unknown]
  - Mitral valve incompetence [Unknown]

NARRATIVE: CASE EVENT DATE: 20041222
